FAERS Safety Report 5075059-1 (Version None)
Quarter: 2006Q3

REPORT INFORMATION
  Report Type: 
  Country: None (occurrence: None)
  Receive Date: 20060804
  Receipt Date: 20060720
  Transmission Date: 20061208
  Serious: No
  Sender: FDA-Public Use
  Company Number: US017218

PATIENT
  Age: 14 Month
  Sex: Female
  Weight: 7.27 kg

DRUGS (1)
  1. ACTIQ [Suspect]
     Dosage: 200 UG ONCE BUCCAL
     Route: 002
     Dates: start: 20040420, end: 20040420

REACTIONS (1)
  - ACCIDENTAL DRUG INTAKE BY CHILD [None]
